FAERS Safety Report 8816766 (Version 1)
Quarter: 2012Q4

REPORT INFORMATION
  Report Type: Spontaneous
  Country: US (occurrence: None)
  Receive Date: 20121001
  Receipt Date: 20121001
  Transmission Date: 20130627
  Serious: Yes (Death, Hospitalization)
  Sender: FDA-Public Use
  Company Number: USA/USA/12/0026052

PATIENT
  Age: 79 Year
  Sex: Male

DRUGS (6)
  1. CLOPIDOGREL BISULFATE [Suspect]
     Indication: ATRIAL FIBRILLATION
  2. CLOPIDOGREL BISULFATE [Suspect]
     Indication: CORONARY ARTERY DISEASE
  3. DABIGATRAN [Suspect]
  4. DABIGATRAN [Suspect]
  5. ACETYLSALICYLIC ACID [Suspect]
  6. ACETYLSALICYLIC ACID [Suspect]

REACTIONS (13)
  - Haemorrhage [None]
  - Chest pain [None]
  - Cardiac arrest [None]
  - Epistaxis [None]
  - Pulseless electrical activity [None]
  - Bradycardia [None]
  - Haemoglobin decreased [None]
  - Haematocrit decreased [None]
  - Blood bicarbonate decreased [None]
  - Blood urea increased [None]
  - Blood creatinine increased [None]
  - Activated partial thromboplastin time [None]
  - Prothrombin time prolonged [None]
